FAERS Safety Report 6550589-1 (Version None)
Quarter: 2010Q1

REPORT INFORMATION
  Report Type: 
  Country: None (occurrence: None)
  Receive Date: 20100125
  Receipt Date: 20100111
  Transmission Date: 20100710
  Serious: Yes (Other)
  Sender: FDA-Public Use
  Company Number: PHEH2007US15443

PATIENT
  Sex: Female

DRUGS (18)
  1. ZOMETA [Suspect]
     Dosage: UNK
     Dates: start: 20020101
  2. GLUCOPHAGE [Concomitant]
     Dosage: UNK
  3. TAXOL [Concomitant]
     Dosage: 37.5 MG
  4. GLUCOTROL [Concomitant]
     Dosage: 10 MG
  5. PLAQUENIL [Concomitant]
     Dosage: UNK
  6. CYMBALTA [Concomitant]
     Dosage: 30 MG / DAILY
     Dates: start: 20050316
  7. CYMBALTA [Concomitant]
     Dosage: 60 MG / DAILY
     Dates: start: 20050301, end: 20050518
  8. CYMBALTA [Concomitant]
     Dosage: 90 MG / DAILY
     Dates: start: 20050518
  9. WELLBUTRIN [Concomitant]
     Dosage: 300 MG / DAILY
  10. PAXIL [Concomitant]
     Dosage: 37.5 MG
  11. ADVAIR [Concomitant]
     Dosage: 100/50
  12. CEPHALEXIN [Concomitant]
     Dosage: 500 MG / BID
     Dates: start: 20011115
  13. GUAIFENESIN LA [Concomitant]
     Dosage: 600 MG / BID
     Dates: start: 20011115
  14. DIFLUCAN [Concomitant]
     Dosage: UNK
  15. KENALOG [Concomitant]
     Dosage: 10 MG
  16. TEMOVATE [Concomitant]
     Dosage: UNK
  17. OXYCONTIN [Concomitant]
     Dosage: UNK
  18. ATIVAN [Concomitant]

REACTIONS (25)
  - ALOPECIA [None]
  - ANHEDONIA [None]
  - ANXIETY [None]
  - BLOOD ALKALINE PHOSPHATASE INCREASED [None]
  - BONE DISORDER [None]
  - DEBRIDEMENT [None]
  - DEPRESSION [None]
  - DIABETES MELLITUS [None]
  - ENCEPHALOPATHY [None]
  - HAEMATOCRIT DECREASED [None]
  - HAEMOGLOBIN DECREASED [None]
  - HEADACHE [None]
  - INFLUENZA LIKE ILLNESS [None]
  - INJURY [None]
  - MUSCULAR WEAKNESS [None]
  - MUSCULOSKELETAL STIFFNESS [None]
  - NASAL POLYPS [None]
  - OSTEONECROSIS [None]
  - PAIN [None]
  - PNEUMONIA CRYPTOCOCCAL [None]
  - PROTEIN TOTAL INCREASED [None]
  - PULMONARY CONGESTION [None]
  - SINUS TACHYCARDIA [None]
  - SINUSITIS [None]
  - TOOTH EXTRACTION [None]
